FAERS Safety Report 6167079-0 (Version None)
Quarter: 2009Q2

REPORT INFORMATION
  Report Type: 
  Country: None (occurrence: None)
  Receive Date: 20090424
  Receipt Date: 20081125
  Transmission Date: 20091009
  Serious: Yes (Death, Other)
  Sender: FDA-Public Use
  Company Number: US-PFIZER INC-2007107665

PATIENT
  Age: 41 Year
  Sex: Female
  Weight: 107 kg

DRUGS (7)
  1. CHANTIX [Suspect]
     Indication: SMOKING CESSATION THERAPY
     Dosage: UNK
     Route: 048
  2. PROTONIX [Concomitant]
  3. CLONAZEPAM [Concomitant]
  4. SEROQUEL [Concomitant]
  5. WELLBUTRIN SR [Concomitant]
  6. TRILEPTAL [Concomitant]
  7. SINGULAIR [Concomitant]

REACTIONS (8)
  - AGITATION [None]
  - ANGER [None]
  - COMPLETED SUICIDE [None]
  - FORMICATION [None]
  - INSOMNIA [None]
  - IRRITABILITY [None]
  - MANIA [None]
  - SUICIDAL IDEATION [None]
